FAERS Safety Report 8970390 (Version 3)
Quarter: 2013Q3

REPORT INFORMATION
  Report Type: Report from Study
  Country: IT (occurrence: IT)
  Receive Date: 20121218
  Receipt Date: 20130913
  Transmission Date: 20140515
  Serious: Yes (Hospitalization)
  Sender: FDA-Public Use
  Company Number: IT-UCBSA-073091

PATIENT
  Age: 57 Year
  Sex: Male
  Weight: 78 kg

DRUGS (14)
  1. NEUPRO [Suspect]
     Indication: PARKINSON^S DISEASE
     Route: 062
     Dates: start: 20111006, end: 20120912
  2. NEUPRO [Suspect]
     Indication: PARKINSON^S DISEASE
     Route: 062
     Dates: start: 20101124, end: 20111005
  3. NEUPRO [Suspect]
     Indication: PARKINSON^S DISEASE
     Route: 062
     Dates: start: 201006, end: 20101123
  4. SINEMET [Concomitant]
     Indication: PARKINSON^S DISEASE
     Dosage: SINGLE DOSE: 200+50MG
     Dates: end: 20120321
  5. SINEMET [Concomitant]
     Indication: PARKINSON^S DISEASE
     Dosage: SINGLE DOSE: 200+50MG
     Dates: start: 20120322, end: 20120912
  6. SINEMET [Concomitant]
     Indication: PARKINSON^S DISEASE
     Dosage: SINGLE DOSE: 150+37.5MG
     Dates: start: 20120913
  7. SIRIO [Concomitant]
     Indication: PARKINSON^S DISEASE
     Dates: start: 20071212, end: 20101124
  8. SIRIO [Concomitant]
     Indication: PARKINSON^S DISEASE
     Dates: start: 20101125, end: 20120321
  9. SIRIO [Concomitant]
     Indication: PARKINSON^S DISEASE
     Dates: start: 20120322, end: 20120912
  10. SIRIO [Concomitant]
     Indication: PARKINSON^S DISEASE
     Dates: start: 20120913
  11. LEPONEX [Concomitant]
     Indication: BIPOLAR DISORDER
  12. XANAX [Concomitant]
     Indication: BIPOLAR DISORDER
     Dosage: SINGLE DOSE: 12 OTHER DROPS
     Dates: end: 20111005
  13. XANAX [Concomitant]
     Indication: BIPOLAR DISORDER
     Dates: start: 20111006
  14. CIPRALEX [Concomitant]
     Indication: BIPOLAR DISORDER

REACTIONS (1)
  - Angioedema [Recovered/Resolved]
